FAERS Safety Report 17320889 (Version 2)
Quarter: 2020Q4

REPORT INFORMATION
  Report Type: Spontaneous
  Country: JP (occurrence: JP)
  Receive Date: 20200126
  Receipt Date: 20201013
  Transmission Date: 20210113
  Serious: Yes (Other)
  Sender: FDA-Public Use
  Company Number: JP-ABBVIE-19K-087-3159675-00

PATIENT
  Sex: Male

DRUGS (7)
  1. REBAMIPIDE [Concomitant]
     Active Substance: REBAMIPIDE
     Indication: GASTRIC CANCER
     Dosage: PERORAL MEDICINE
     Route: 048
     Dates: start: 20180609
  2. DAIPHEN [Concomitant]
     Active Substance: SULFAMETHOXAZOLE\TRIMETHOPRIM
     Dosage: DOSE UNKNOWN
     Route: 048
     Dates: start: 20190527, end: 20190720
  3. NEXIUM [Concomitant]
     Active Substance: ESOMEPRAZOLE MAGNESIUM
     Indication: GASTRIC CANCER
     Route: 048
     Dates: start: 20180906
  4. IMBRUVICA [Suspect]
     Active Substance: IBRUTINIB
     Dosage: IBRUTINIB:140MG
     Route: 048
     Dates: start: 20190510, end: 20190705
  5. DAIPHEN [Concomitant]
     Active Substance: SULFAMETHOXAZOLE\TRIMETHOPRIM
     Indication: INFECTION PROPHYLAXIS
     Dosage: DOSE UNKNOWN
     Route: 048
     Dates: start: 20180831, end: 201902
  6. IMBRUVICA [Suspect]
     Active Substance: IBRUTINIB
     Indication: MANTLE CELL LYMPHOMA
     Route: 048
     Dates: start: 20180718, end: 20190412
  7. EQUMET [Concomitant]
     Active Substance: METFORMIN HYDROCHLORIDE\VILDAGLIPTIN
     Indication: DIABETES MELLITUS
     Route: 048

REACTIONS (3)
  - Paraparesis [Recovering/Resolving]
  - Rash pruritic [Recovering/Resolving]
  - Erythema multiforme [Recovering/Resolving]

NARRATIVE: CASE EVENT DATE: 201901
